FAERS Safety Report 4480720-3 (Version None)
Quarter: 2004Q4

REPORT INFORMATION
  Report Type: 
  Country: None (occurrence: None)
  Receive Date: 20041018
  Receipt Date: 20041005
  Transmission Date: 20050328
  Serious: Yes (Hospitalization)
  Sender: FDA-Public Use
  Company Number: 2004-04344

PATIENT
  Age: 40 Year
  Sex: Female

DRUGS (5)
  1. LORAZEPAM [Suspect]
     Indication: SCHIZOPHRENIA
     Dosage: 0.5 MG TID ORAL
     Route: 048
  2. QUETIAPINE [Concomitant]
     Indication: MANIA
  3. TRIMIPRAMINE MALEATE [Concomitant]
  4. PIPAMPERONE [Concomitant]
  5. DIAZEPAM [Concomitant]

REACTIONS (1)
  - ELECTROCARDIOGRAM QT PROLONGED [None]
